FAERS Safety Report 5418153-5 (Version None)
Quarter: 2007Q3

REPORT INFORMATION
  Report Type: 
  Country: None (occurrence: None)
  Receive Date: 20070817
  Receipt Date: 20070808
  Transmission Date: 20080115
  Serious: Yes (Hospitalization, Other)
  Sender: FDA-Public Use
  Company Number: US-ELI_LILLY_AND_COMPANY-US200708001816

PATIENT
  Age: 76 Year
  Sex: Male

DRUGS (1)
  1. HUMULIN N [Suspect]
     Dosage: UNK, UNK
     Dates: start: 20070701

REACTIONS (4)
  - DIARRHOEA [None]
  - DYSPNOEA [None]
  - GASTROINTESTINAL INFECTION [None]
  - THROMBOSIS [None]
